FAERS Safety Report 7627927-1 (Version None)
Quarter: 2011Q3

REPORT INFORMATION
  Report Type: 
  Country: None (occurrence: None)
  Receive Date: 20110722
  Receipt Date: 20110708
  Transmission Date: 20111222
  Serious: Yes (Death)
  Sender: FDA-Public Use
  Company Number: SE-MYLANLABS-2011S1014486

PATIENT
  Age: 35 Year
  Sex: Male

DRUGS (2)
  1. TRIMEPRAZINE TAB [Suspect]
     Route: 065
  2. VENLAFAXINE [Suspect]
     Route: 065

REACTIONS (1)
  - ACCIDENTAL DEATH [None]
